FAERS Safety Report 9026671 (Version 1)
Quarter: 2013Q1

REPORT INFORMATION
  Report Type: Spontaneous
  Country: US (occurrence: US)
  Receive Date: 20130123
  Receipt Date: 20130123
  Transmission Date: 20140127
  Serious: Yes (Hospitalization, Other)
  Sender: FDA-Public Use
  Company Number: US-ELI_LILLY_AND_COMPANY-US201212000782

PATIENT
  Sex: Male
  Weight: 149.66 kg

DRUGS (2)
  1. ZYPREXA [Suspect]
     Dosage: UNK, UNKNOWN
  2. ZOLOFT [Concomitant]
     Indication: DEPRESSION
     Dosage: 10 MG, BID
     Route: 048
     Dates: start: 2004

REACTIONS (5)
  - Suicide attempt [Unknown]
  - Weight increased [Unknown]
  - Mania [Recovered/Resolved]
  - Mental retardation [Unknown]
  - Unevaluable event [Unknown]
